FAERS Safety Report 9695149 (Version 1)
Quarter: 2013Q4

REPORT INFORMATION
  Report Type: Spontaneous
  Country: IT (occurrence: IT)
  Receive Date: 20131119
  Receipt Date: 20131119
  Transmission Date: 20140711
  Serious: Yes (Hospitalization)
  Sender: FDA-Public Use
  Company Number: IT-MYLANLABS-2013S1025141

PATIENT
  Age: 73 Year
  Sex: Male

DRUGS (6)
  1. ALFUZOSIN [Suspect]
     Indication: BENIGN PROSTATIC HYPERPLASIA
     Route: 048
     Dates: start: 20100901, end: 20130919
  2. RAMIPRIL [Suspect]
     Indication: HYPERTENSION
     Route: 048
     Dates: start: 20130201, end: 20130919
  3. LUVION /00252501/ [Suspect]
     Indication: HYPERTENSION
     Route: 048
     Dates: start: 20130201, end: 20130919
  4. SOLIAN [Concomitant]
     Indication: PRODUCT USED FOR UNKNOWN INDICATION
     Dates: start: 20130201, end: 20131031
  5. BISOPROLOL [Concomitant]
     Indication: VENTRICULAR EXTRASYSTOLES
     Dates: start: 20130201, end: 20131031
  6. FINASTERIDE [Concomitant]
     Indication: BENIGN PROSTATIC HYPERPLASIA
     Dates: start: 20100901, end: 20131031

REACTIONS (5)
  - Confusional state [Recovered/Resolved]
  - Hyperhidrosis [Recovered/Resolved]
  - Hypotension [Recovered/Resolved]
  - Presyncope [Recovered/Resolved]
  - Tremor [Recovered/Resolved]
